FAERS Safety Report 5969278-7 (Version None)
Quarter: 2008Q4

REPORT INFORMATION
  Report Type: 
  Country: None (occurrence: None)
  Receive Date: 20081126
  Receipt Date: 20081125
  Transmission Date: 20090506
  Serious: Yes (Hospitalization, Other)
  Sender: FDA-Public Use
  Company Number: JP-B.I. PHARMACEUTICALS,INC./RIDGEFIELD-2008-BP-17222NB

PATIENT
  Age: 71 Year
  Sex: Male
  Weight: 85 kg

DRUGS (3)
  1. MICARDIS [Suspect]
     Indication: BLOOD PRESSURE MANAGEMENT
     Dosage: 40MG
     Route: 048
  2. ATENOLOL [Concomitant]
     Indication: BLOOD PRESSURE MANAGEMENT
     Dosage: 100MG
     Route: 048
  3. NEFEDIPINE [Concomitant]
     Indication: BLOOD PRESSURE MANAGEMENT
     Dosage: 40MG
     Route: 048

REACTIONS (1)
  - HEPATIC NEOPLASM MALIGNANT [None]
